FAERS Safety Report 4547952-7 (Version None)
Quarter: 2005Q1

REPORT INFORMATION
  Report Type: 
  Country: None (occurrence: None)
  Receive Date: 20050110
  Receipt Date: 20050103
  Transmission Date: 20050727
  Serious: Yes (Hospitalization)
  Sender: FDA-Public Use
  Company Number: US-JNJFOC-20050101036

PATIENT
  Sex: Male
  Weight: 83.92 kg

DRUGS (1)
  1. DURAGESIC [Suspect]
     Route: 062

REACTIONS (1)
  - INJURY [None]
